FAERS Safety Report 10217347 (Version 3)
Quarter: 2014Q2

REPORT INFORMATION
  Report Type: Spontaneous
  Country: JP (occurrence: JP)
  Receive Date: 20140604
  Receipt Date: 20140611
  Transmission Date: 20141212
  Serious: Yes (Other)
  Sender: FDA-Public Use
  Company Number: JP-PFIZER INC-2014102389

PATIENT
  Sex: Female

DRUGS (16)
  1. LYRICA [Suspect]
     Indication: NEURALGIA
     Dosage: 25 MG, 1X/DAY, AFTER DINNER
     Route: 048
     Dates: start: 2014, end: 20140405
  2. LYRICA [Suspect]
     Dosage: 50 MG, 2X/DAY, AFTER BREAKFAST AND DINNER
     Route: 048
     Dates: start: 20140406, end: 20140413
  3. TAKEPRON OD [Concomitant]
     Dosage: 15 MG, DAILY
  4. THYRADIN-S [Concomitant]
     Dosage: 50 UG, DAILY
  5. RINDERON [Concomitant]
     Dosage: 1 MG, DAILY
  6. TRYPTANOL [Concomitant]
     Dosage: UNK
  7. PURSENNID [Concomitant]
     Dosage: 24 MG, DAILY
  8. VALTREX [Concomitant]
     Dosage: UNK
  9. LOXONIN [Concomitant]
     Dosage: 180 MG, DAILY
  10. MAGMITT [Concomitant]
     Dosage: UNK
  11. MS CONTIN [Concomitant]
     Dosage: 10 MG, 2X/DAY
  12. FRANDOL TAPE [Concomitant]
     Dosage: 40 MG, DAILY
  13. FENTOS TAPE [Concomitant]
     Dosage: 4 MG, 1X/DAY,
  14. POSTERISAN FORTE [Concomitant]
     Dosage: UNK
     Dates: end: 20140403
  15. ACUATIM [Concomitant]
     Dosage: UNK
  16. NERIPROCT [Concomitant]
     Dosage: UNK

REACTIONS (5)
  - Lymphangiosis carcinomatosa [Unknown]
  - Disease progression [Unknown]
  - Obstructive airways disorder [Unknown]
  - Cardiac failure [Recovered/Resolved]
  - Drug ineffective [Unknown]
